FAERS Safety Report 11670386 (Version 1)
Quarter: 2015Q4

REPORT INFORMATION
  Report Type: Spontaneous
  Country: US (occurrence: US)
  Receive Date: 20151027
  Receipt Date: 20151027
  Transmission Date: 20160304
  Serious: No
  Sender: FDA-Public Use
  Company Number: US-ELI_LILLY_AND_COMPANY-US201004007220

PATIENT
  Age: 44 Year
  Sex: Female

DRUGS (3)
  1. REQUIP [Concomitant]
     Active Substance: ROPINIROLE HYDROCHLORIDE
     Indication: RESTLESS LEGS SYNDROME
  2. FORTEO [Suspect]
     Active Substance: TERIPARATIDE
     Indication: OSTEOPOROSIS
     Dosage: 20 UG, DAILY (1/D)
     Dates: start: 20100401
  3. FORTEO [Suspect]
     Active Substance: TERIPARATIDE
     Dosage: 20 UG, DAILY (1/D)

REACTIONS (16)
  - Musculoskeletal pain [Not Recovered/Not Resolved]
  - Muscle spasms [Unknown]
  - Pain in extremity [Not Recovered/Not Resolved]
  - Poor quality sleep [Unknown]
  - Nausea [Unknown]
  - Back pain [Not Recovered/Not Resolved]
  - Decreased appetite [Unknown]
  - Anxiety [Not Recovered/Not Resolved]
  - Headache [Not Recovered/Not Resolved]
  - Vomiting [Unknown]
  - Restless legs syndrome [Unknown]
  - Arthralgia [Not Recovered/Not Resolved]
  - Fibromyalgia [Unknown]
  - Arthritis [Unknown]
  - Peptic ulcer [Not Recovered/Not Resolved]
  - Muscular weakness [Unknown]

NARRATIVE: CASE EVENT DATE: 201004
